FAERS Safety Report 5816227-8 (Version None)
Quarter: 2008Q3

REPORT INFORMATION
  Report Type: 
  Country: None (occurrence: None)
  Receive Date: 20080721
  Receipt Date: 20080717
  Transmission Date: 20090109
  Serious: Yes (Other)
  Sender: FDA-Public Use
  Company Number: D0058112A

PATIENT

DRUGS (1)
  1. REQUIP [Suspect]
     Route: 048

REACTIONS (1)
  - PSYCHOTIC DISORDER [None]
